FAERS Safety Report 14867725 (Version 1)
Quarter: 2018Q2

REPORT INFORMATION
  Report Type: Spontaneous
  Country: US (occurrence: US)
  Receive Date: 20180509
  Receipt Date: 20180509
  Transmission Date: 20180711
  Serious: Yes (Other)
  Sender: FDA-Public Use
  Company Number: US-AUROBINDO-AUR-APL-2014-04739

PATIENT
  Age: 78 Year
  Sex: Male

DRUGS (6)
  1. AMLODIPINE BESYLATE AND BENAZEPRIL HYDROCHLORIDE CAPSULES 2.5MG/10MG [Suspect]
     Active Substance: AMLODIPINE BESYLATE\BENAZEPRIL HYDROCHLORIDE
     Indication: HYPERTENSION
     Dosage: UNK UNK,UNK,,10/20 MG DAILY
     Route: 065
  2. CARVEDILOL. [Concomitant]
     Active Substance: CARVEDILOL
     Indication: PRODUCT USED FOR UNKNOWN INDICATION
     Dosage: 25 MILLIGRAM
     Route: 065
  3. SPIRONOLACTONE. [Suspect]
     Active Substance: SPIRONOLACTONE
     Indication: PRODUCT USED FOR UNKNOWN INDICATION
     Dosage: 25 MG,UNK,
     Route: 065
  4. ROSUVASTATIN. [Concomitant]
     Active Substance: ROSUVASTATIN
     Indication: PRODUCT USED FOR UNKNOWN INDICATION
     Dosage: 40 MILLIGRAM, DAILY
     Route: 065
  5. ALISKIREN [Suspect]
     Active Substance: ALISKIREN
     Indication: HYPERTENSION
     Dosage: 150 MG,DAILY,
     Route: 065
  6. HYDROCHLOROTHIAZIDE TABLETS USP 25 MG [Suspect]
     Active Substance: HYDROCHLOROTHIAZIDE
     Indication: HYPERTENSION
     Dosage: 25 MG,DAILY,
     Route: 065

REACTIONS (10)
  - Blood creatinine increased [Recovered/Resolved]
  - Defect conduction intraventricular [Unknown]
  - Rales [Unknown]
  - Blood urea increased [Recovered/Resolved]
  - Acute kidney injury [Recovered/Resolved]
  - Dyspnoea [Unknown]
  - Hypotension [Unknown]
  - Drug effect incomplete [Unknown]
  - Bradycardia [Unknown]
  - Hyperkalaemia [Recovered/Resolved]
